FAERS Safety Report 13124084 (Version 1)
Quarter: 2017Q1

REPORT INFORMATION
  Report Type: Spontaneous
  Country: CA (occurrence: CA)
  Receive Date: 20170118
  Receipt Date: 20170118
  Transmission Date: 20170428
  Serious: Yes (Other)
  Sender: FDA-Public Use
  Company Number: CA-CONCORDIA PHARMACEUTICALS INC.-GSH201701-000441

PATIENT
  Age: 78 Year
  Sex: Female

DRUGS (9)
  1. PLAQUENIL [Suspect]
     Active Substance: HYDROXYCHLOROQUINE SULFATE
     Indication: PRODUCT USED FOR UNKNOWN INDICATION
     Route: 065
  2. MIRTAZAPINE. [Concomitant]
     Active Substance: MIRTAZAPINE
  3. ACTEMRA [Concomitant]
     Active Substance: TOCILIZUMAB
  4. METHOTREXATE SODIUM. [Concomitant]
     Active Substance: METHOTREXATE SODIUM
  5. ORENCIA [Concomitant]
     Active Substance: ABATACEPT
  6. LEFLUNOMIDE. [Suspect]
     Active Substance: LEFLUNOMIDE
     Indication: PRODUCT USED FOR UNKNOWN INDICATION
     Route: 065
  7. LYRICA [Concomitant]
     Active Substance: PREGABALIN
  8. SULFASALAZINE. [Concomitant]
     Active Substance: SULFASALAZINE
  9. ENBREL [Concomitant]
     Active Substance: ETANERCEPT

REACTIONS (3)
  - Drug intolerance [Unknown]
  - Muscle spasms [Unknown]
  - Diarrhoea [Unknown]
